FAERS Safety Report 10170157 (Version 1)
Quarter: 2014Q2

REPORT INFORMATION
  Report Type: Spontaneous
  Country: US (occurrence: US)
  Receive Date: 20140513
  Receipt Date: 20140513
  Transmission Date: 20141212
  Serious: Yes (Hospitalization)
  Sender: FDA-Public Use
  Company Number: US-BAXTER-2014BAX022442

PATIENT
  Age: 59 Year
  Sex: Female

DRUGS (1)
  1. 0.9% SODIUM CHLORIDE INJECTION [Suspect]
     Indication: PRODUCT USED FOR UNKNOWN INDICATION
     Route: 065

REACTIONS (3)
  - Sepsis [Recovering/Resolving]
  - Pulmonary oedema [Recovering/Resolving]
  - Myocardial oedema [Recovering/Resolving]
